FAERS Safety Report 26192457 (Version 1)
Quarter: 2025Q4

REPORT INFORMATION
  Report Type: Spontaneous
  Country: US (occurrence: US)
  Receive Date: 20251223
  Receipt Date: 20251223
  Transmission Date: 20260117
  Serious: No
  Sender: SANOFI AVENTIS
  Company Number: US-SANOFI-02755191

PATIENT
  Age: 35 Year
  Sex: Male

DRUGS (2)
  1. LOVENOX [Suspect]
     Active Substance: ENOXAPARIN SODIUM
     Indication: Necrotising fasciitis
     Dosage: UNK UNK, QD
  2. LOVENOX [Suspect]
     Active Substance: ENOXAPARIN SODIUM
     Indication: Skin graft

REACTIONS (3)
  - Contusion [Unknown]
  - Off label use [Unknown]
  - Product administered at inappropriate site [Unknown]
